FAERS Safety Report 15771938 (Version 4)
Quarter: 2019Q1

REPORT INFORMATION
  Report Type: Spontaneous
  Country: US (occurrence: US)
  Receive Date: 20181228
  Receipt Date: 20190116
  Transmission Date: 20190417
  Serious: Yes (Other)
  Sender: FDA-Public Use
  Company Number: US-SA-2018SA393575

PATIENT
  Age: 60 Year
  Sex: Male

DRUGS (1)
  1. ALLEGRA ALLERGY [Suspect]
     Active Substance: FEXOFENADINE HYDROCHLORIDE
     Indication: RESPIRATORY DISORDER
     Dosage: 1 DF, QD

REACTIONS (2)
  - Peripheral circulatory failure [Unknown]
  - Loss of consciousness [Unknown]
